FAERS Safety Report 25267956 (Version 1)
Quarter: 2025Q2

REPORT INFORMATION
  Report Type: Spontaneous
  Country: NL (occurrence: NL)
  Receive Date: 20250505
  Receipt Date: 20250505
  Transmission Date: 20250716
  Serious: Yes (Other)
  Sender: AUROBINDO
  Company Number: NL-AUROBINDO-AUR-APL-2023-079624

PATIENT
  Age: 62 Year
  Sex: Male

DRUGS (1)
  1. PREDNISONE [Suspect]
     Active Substance: PREDNISONE
     Indication: Embolism
     Route: 065

REACTIONS (1)
  - Drug ineffective [Unknown]
